FAERS Safety Report 7637104 (Version 6)
Quarter: 2013Q1

REPORT INFORMATION
  Report Type: Spontaneous
  Country: JP (occurrence: JP)
  Receive Date: 20101022
  Receipt Date: 20130228
  Transmission Date: 20140127
  Serious: Yes (Hospitalization)
  Sender: FDA-Public Use
  Company Number: JP-JNJFOC-20101004383

PATIENT
  Age: 69 Year
  Sex: Female
  Weight: 45 kg

DRUGS (10)
  1. DUROTEP MT [Suspect]
     Indication: BACK PAIN
     Route: 062
     Dates: end: 20100616
  2. UNSPECIFIED DRUG [Suspect]
     Indication: BIPOLAR DISORDER
     Route: 065
  3. UNSPECIFIED DRUG [Suspect]
     Indication: BIPOLAR DISORDER
     Route: 065
  4. RIVOTRIL [Concomitant]
     Route: 048
  5. DEPAKENE-R [Concomitant]
     Route: 048
  6. TEGRETOL [Concomitant]
     Route: 048
  7. PURSENNID [Concomitant]
     Route: 048
  8. ROHYPNOL [Concomitant]
     Route: 048
  9. LODOPIN [Concomitant]
     Route: 048
  10. HALCION [Concomitant]
     Route: 048

REACTIONS (9)
  - Pneumonia aspiration [Recovered/Resolved]
  - Altered state of consciousness [Recovered/Resolved]
  - Diabetes insipidus [Unknown]
  - Hypernatraemia [Unknown]
  - Dehydration [Unknown]
  - Drug diversion [Recovered/Resolved]
  - Intentional drug misuse [Unknown]
  - Feeling abnormal [Recovering/Resolving]
  - Somnolence [Unknown]
